FAERS Safety Report 9360149 (Version 1)
Quarter: 2013Q2

REPORT INFORMATION
  Report Type: Spontaneous
  Country: US (occurrence: None)
  Receive Date: 20130620
  Receipt Date: 20130620
  Transmission Date: 20140414
  Serious: Yes (Other)
  Sender: FDA-Public Use
  Company Number: None

PATIENT
  Sex: 0

DRUGS (2)
  1. BIOTENE [Suspect]
     Indication: DRY MOUTH
     Dosage: RINSED 1X DAILY LATER 2X
     Dates: start: 20120412, end: 201209
  2. BIOTENE [Suspect]
     Dosage: BRUSHED 2X DAILY STILL HAD DRY MOUTH

REACTIONS (13)
  - Stomatitis [None]
  - Pain [None]
  - Paraesthesia [None]
  - Confusional state [None]
  - Rash [None]
  - Oral herpes [None]
  - Nasal congestion [None]
  - Cough [None]
  - Dyspnoea [None]
  - Chest discomfort [None]
  - Eye pruritus [None]
  - Weight decreased [None]
  - Hypophagia [None]
